FAERS Safety Report 13814235 (Version 1)
Quarter: 2017Q3

REPORT INFORMATION
  Report Type: Spontaneous
  Country: US (occurrence: US)
  Receive Date: 20170730
  Receipt Date: 20170730
  Transmission Date: 20171127
  Serious: Yes (Disabling)
  Sender: FDA-Public Use
  Company Number: None

PATIENT
  Sex: Male
  Weight: 74.25 kg

DRUGS (16)
  1. VITAMIN C [Concomitant]
     Active Substance: ASCORBIC ACID
  2. CINNAMON. [Concomitant]
     Active Substance: CINNAMON
  3. TURMERIC [Concomitant]
     Active Substance: HERBALS\TURMERIC
  4. VITAMIN B12 [Concomitant]
     Active Substance: CYANOCOBALAMIN
  5. STOOL SOFTENER (DOCUSATE) [Concomitant]
     Active Substance: DOCUSATE
  6. N-ACETYL CYSTEINE [Concomitant]
  7. VITAMIN D3 [Concomitant]
     Active Substance: CHOLECALCIFEROL
  8. PROBIOTIC DIGESTIVE [Concomitant]
  9. CIPRO GENERIC CIPROFLOXEN [Suspect]
     Active Substance: CIPROFLOXACIN HYDROCHLORIDE
     Indication: PROSTATOMEGALY
     Dosage: ?          QUANTITY:1 TABLET(S);?
     Route: 048
     Dates: start: 20150731, end: 20150821
  10. MULTIVITAMIN [Concomitant]
     Active Substance: VITAMINS
  11. PSYLLIUM FIBER [Concomitant]
  12. FISH OIL [Concomitant]
     Active Substance: FISH OIL
  13. GARLIC. [Concomitant]
     Active Substance: GARLIC
  14. CIPRO GENERIC CIPROFLOXEN [Suspect]
     Active Substance: CIPROFLOXACIN HYDROCHLORIDE
     Indication: PROSTATITIS
     Dosage: ?          QUANTITY:1 TABLET(S);?
     Route: 048
     Dates: start: 20150731, end: 20150821
  15. LOW DOSE ASPIRIN [Concomitant]
     Active Substance: ASPIRIN
  16. MAGNESIUM [Concomitant]
     Active Substance: MAGNESIUM

REACTIONS (4)
  - Hypersensitivity [None]
  - Groin pain [None]
  - Dizziness [None]
  - Tendonitis [None]

NARRATIVE: CASE EVENT DATE: 20150731
